FAERS Safety Report 13693607 (Version 2)
Quarter: 2017Q2

REPORT INFORMATION
  Report Type: Spontaneous
  Country: DE (occurrence: DE)
  Receive Date: 20170627
  Receipt Date: 20170629
  Transmission Date: 20170830
  Serious: Yes (Other)
  Sender: FDA-Public Use
  Company Number: DE-AMGEN-DEUSP2017092691

PATIENT
  Age: 20 Year
  Sex: Female

DRUGS (2)
  1. BLINCYTO [Suspect]
     Active Substance: BLINATUMOMAB
     Indication: BURKITT^S LYMPHOMA REFRACTORY
     Dosage: 112 MCG, QD FOR 28 DAYS (TWO CYCLES)
     Route: 065
     Dates: start: 201705
  2. BLINCYTO [Suspect]
     Active Substance: BLINATUMOMAB
     Dosage: 28 MCG, QD THE FIRST FOUR DAYS
     Route: 065
     Dates: end: 20170620

REACTIONS (2)
  - Off label use [Unknown]
  - Burkitt^s lymphoma refractory [Not Recovered/Not Resolved]

NARRATIVE: CASE EVENT DATE: 201705
